FAERS Safety Report 9173777 (Version 2)
Quarter: 2013Q1

REPORT INFORMATION
  Report Type: Spontaneous
  Country: US (occurrence: US)
  Receive Date: 20130320
  Receipt Date: 20130325
  Transmission Date: 20140127
  Serious: No
  Sender: FDA-Public Use
  Company Number: US-ASTRAZENECA-2013SE12573

PATIENT
  Age: 63 Year
  Sex: Female
  Weight: 78.5 kg

DRUGS (4)
  1. CRESTOR [Suspect]
     Indication: ARTERIAL DISORDER
     Route: 048
     Dates: start: 20130219, end: 20130219
  2. NATURAL SUPPLEMENT [Concomitant]
  3. VITAMIN B COMPLEX [Concomitant]
  4. VITAMIN C [Concomitant]

REACTIONS (5)
  - Feeling abnormal [Recovering/Resolving]
  - Activities of daily living impaired [Recovering/Resolving]
  - Bone pain [Unknown]
  - Gait disturbance [Unknown]
  - Muscle spasms [Recovering/Resolving]
